FAERS Safety Report 10378045 (Version 1)
Quarter: 2014Q1

REPORT INFORMATION
  Report Type: Spontaneous
  Country: US (occurrence: None)
  Receive Date: 20140306
  Receipt Date: 20140306
  Transmission Date: 20141002
  Serious: Yes (Other)
  Sender: FDA-Public Use
  Company Number: 163-21880-13032197

PATIENT
  Age: 68 Year
  Sex: Male
  Weight: 67.13 kg

DRUGS (10)
  1. REVLIMID (LENALIDOMIDE) (25 MILLIGRAM, CAPSULES) [Suspect]
     Indication: PLASMA CELL MYELOMA
     Dosage: 25 MG, 21 IN 21 D, PO
     Route: 048
     Dates: start: 20121212
  2. PREDNISONE (PREDNISONE) (UNKNOWN) [Concomitant]
  3. ASA (ACETYLSALICYLIC ACID) (UNKNOWN) [Concomitant]
  4. FLUCONAZOLE (FLUCONAZOLE) (UNKNOWN) [Concomitant]
  5. TRAZODONE (TRAZODONE) (UNKNOWN) (TRAZODONE) [Concomitant]
  6. BUPROPION (BUPROPION) (UNKNOWN) (BUPROPION) [Concomitant]
  7. PROPANOLOL (PROPANOLOL) (UNKNOWN) [Concomitant]
  8. FOLIC ACID (FOLIC ACID) (UNKNOWN) [Concomitant]
  9. MS CONTIN (MORPHINE SULFATE) (UNKNOWN) [Concomitant]
  10. MORPHINE (MORPHINE) [Concomitant]

REACTIONS (1)
  - Full blood count decreased [None]
